FAERS Safety Report 25379066 (Version 2)
Quarter: 2025Q2

REPORT INFORMATION
  Report Type: Spontaneous
  Country: DE (occurrence: DE)
  Receive Date: 20250530
  Receipt Date: 20250630
  Transmission Date: 20250717
  Serious: Yes (Hospitalization, Disabling, Other)
  Sender: DR REDDYS
  Company Number: None

PATIENT
  Age: 86 Year
  Sex: Female

DRUGS (21)
  1. METOPROLOL [Suspect]
     Active Substance: METOPROLOL
     Indication: Blood pressure measurement
  2. SITAGLIPTIN [Suspect]
     Active Substance: SITAGLIPTIN
     Indication: Product used for unknown indication
     Dosage: DOSE REDUCED FROM BID 50 MG TO 50 MG ONCE DAILY
  3. SITAGLIPTIN [Suspect]
     Active Substance: SITAGLIPTIN
     Dosage: DOSE REDUCED FROM BID 50 MG TO 50 MG ONCE DAILY
  4. SITAGLIPTIN [Suspect]
     Active Substance: SITAGLIPTIN
  5. SITAGLIPTIN [Suspect]
     Active Substance: SITAGLIPTIN
  6. SIMVASTATIN [Suspect]
     Active Substance: SIMVASTATIN
     Indication: Product used for unknown indication
  7. PANTOPRAZOLE [Suspect]
     Active Substance: PANTOPRAZOLE
     Indication: Product used for unknown indication
     Dosage: DOSE REDUCED FROM 40 MG TO 20 MG
  8. PANTOPRAZOLE [Suspect]
     Active Substance: PANTOPRAZOLE
     Dosage: DOSE REDUCED FROM 40 MG TO 20 MG
  9. HYDROCHLOROTHIAZIDE\RAMIPRIL [Suspect]
     Active Substance: HYDROCHLOROTHIAZIDE\RAMIPRIL
     Indication: Blood pressure measurement
     Dosage: 50 MG PER DAY
  10. NALOXONE HYDROCHLORIDE\TILIDINE HYDROCHLORIDE [Suspect]
     Active Substance: NALOXONE HYDROCHLORIDE\TILIDINE HYDROCHLORIDE
     Indication: Product used for unknown indication
  11. TORSEMIDE [Suspect]
     Active Substance: TORSEMIDE
     Indication: Blood pressure measurement
  12. PROMETHAZINE [Suspect]
     Active Substance: PROMETHAZINE HYDROCHLORIDE
     Indication: Product used for unknown indication
  13. CINNARIZINE\DIMENHYDRINATE [Suspect]
     Active Substance: CINNARIZINE\DIMENHYDRINATE
     Indication: Dizziness
  14. CITALOPRAM [Suspect]
     Active Substance: CITALOPRAM
     Indication: Product used for unknown indication
     Dosage: DOSE REDUCED FROM 40 MG TO 20 MG
  15. CITALOPRAM [Suspect]
     Active Substance: CITALOPRAM
     Dosage: DOSE REDUCED FROM 40 MG TO 20 MG
  16. METFORMIN [Suspect]
     Active Substance: METFORMIN HYDROCHLORIDE
     Indication: Product used for unknown indication
     Dosage: DOSE REDUCED FROM BID 850 MG TO BID 500 MG
  17. METFORMIN [Suspect]
     Active Substance: METFORMIN HYDROCHLORIDE
     Dosage: DOSE REDUCED FROM BID 850 MG TO BID 500 MG
  18. Schwedentabletten [Concomitant]
     Indication: Product used for unknown indication
  19. ALLOPURINOL [Concomitant]
     Active Substance: ALLOPURINOL
     Indication: Product used for unknown indication
  20. PROPIVERINE [Concomitant]
     Active Substance: PROPIVERINE
     Indication: Product used for unknown indication
  21. BISOPROLOL [Concomitant]
     Active Substance: BISOPROLOL
     Indication: Product used for unknown indication

REACTIONS (17)
  - Fall [Recovered/Resolved]
  - Craniofacial fracture [Recovered/Resolved]
  - Contusion [Recovered/Resolved]
  - Mobility decreased [Recovered/Resolved]
  - Medication error [Unknown]
  - Renal impairment [Unknown]
  - Lethargy [Recovered/Resolved]
  - Hyponatraemia [Unknown]
  - Inappropriate antidiuretic hormone secretion [Unknown]
  - Dizziness [Recovered/Resolved]
  - Fatigue [Recovered/Resolved]
  - Dysphagia [Recovered/Resolved]
  - Constipation [Recovered/Resolved]
  - Prescribed overdose [Unknown]
  - Fear of falling [Unknown]
  - Immobile [Unknown]
  - Incorrect dose administered [Unknown]
